FAERS Safety Report 7333045-2 (Version None)
Quarter: 2011Q1

REPORT INFORMATION
  Report Type: 
  Country: None (occurrence: None)
  Receive Date: 20110304
  Receipt Date: 20110302
  Transmission Date: 20110831
  Serious: Yes (Other)
  Sender: FDA-Public Use
  Company Number: US-PFIZER INC-2011045655

PATIENT
  Age: 26 Year
  Sex: Female

DRUGS (1)
  1. CHANTIX [Suspect]
     Dosage: 1 MG, 2X/DAY
     Dates: start: 20110101

REACTIONS (3)
  - ANXIETY [None]
  - DEPRESSION [None]
  - AGITATION [None]
